FAERS Safety Report 8966300 (Version 1)
Quarter: 2012Q4

REPORT INFORMATION
  Report Type: 
  Country: US (occurrence: US)
  Receive Date: 20121217
  Receipt Date: 20121217
  Transmission Date: 20130627
  Serious: Yes (Other)
  Sender: FDA-Public Use
  Company Number: US-JNJFOC-20121202715

PATIENT
  Age: 58 None
  Sex: Male
  Weight: 81.65 kg

DRUGS (6)
  1. XARELTO [Suspect]
     Indication: PULMONARY EMBOLISM
     Route: 048
     Dates: start: 201205
  2. VITAMINS NOS [Concomitant]
  3. CALCIUM [Concomitant]
  4. NUTRIENTS [Concomitant]
  5. ANTACIDS [Concomitant]
  6. CLARITIN [Concomitant]

REACTIONS (5)
  - Petechiae [Not Recovered/Not Resolved]
  - Dyspepsia [Not Recovered/Not Resolved]
  - Vomiting [Recovered/Resolved]
  - Adverse event [Recovered/Resolved]
  - Eructation [Recovered/Resolved]
